FAERS Safety Report 5956332-9 (Version None)
Quarter: 2008Q4

REPORT INFORMATION
  Report Type: 
  Country: None (occurrence: None)
  Receive Date: 20081118
  Receipt Date: 20081113
  Transmission Date: 20090506
  Serious: Yes (Death)
  Sender: FDA-Public Use
  Company Number: PHHY2008JP28301

PATIENT
  Age: 67 Year
  Sex: Male

DRUGS (2)
  1. DIOVAN [Suspect]
     Indication: HYPERTENSION
     Route: 048
  2. PREDONINE [Concomitant]
     Dosage: UNK
     Dates: end: 20081001

REACTIONS (1)
  - SUDDEN DEATH [None]
